FAERS Safety Report 15378657 (Version 1)
Quarter: 2018Q3

REPORT INFORMATION
  Report Type: Spontaneous
  Country: IN (occurrence: IN)
  Receive Date: 20180913
  Receipt Date: 20180913
  Transmission Date: 20181010
  Serious: Yes (Hospitalization)
  Sender: FDA-Public Use
  Company Number: IN-SA-2018SA250621

PATIENT
  Age: 12 Year
  Sex: Male

DRUGS (2)
  1. PRIMAQUINE [Suspect]
     Active Substance: PRIMAQUINE PHOSPHATE
     Indication: MALARIA
     Dosage: UNK
     Dates: start: 200109
  2. CHLOROQUINE. [Suspect]
     Active Substance: CHLOROQUINE
     Indication: MALARIA
     Dosage: UNK
     Dates: start: 200109

REACTIONS (3)
  - Skin discolouration [Recovered/Resolved]
  - Blood methaemoglobin [Recovered/Resolved]
  - Cyanosis [Recovered/Resolved]

NARRATIVE: CASE EVENT DATE: 20010926
